FAERS Safety Report 5075633-2 (Version None)
Quarter: 2006Q3

REPORT INFORMATION
  Report Type: 
  Country: None (occurrence: None)
  Receive Date: 20060809
  Receipt Date: 20051130
  Transmission Date: 20061208
  Serious: No
  Sender: FDA-Public Use
  Company Number: US-AMGEN-KDL159940

PATIENT
  Sex: Female
  Weight: 60.8 kg

DRUGS (2)
  1. PROCRIT [Suspect]
     Indication: ANAEMIA
     Route: 058
     Dates: start: 20040101
  2. ANTIHYPERTENSIVE MEDICATION NOS [Concomitant]

REACTIONS (4)
  - DIARRHOEA [None]
  - INSOMNIA [None]
  - MALAISE [None]
  - NAUSEA [None]
